APPROVED DRUG PRODUCT: PREVACARE R
Active Ingredient: CHLORHEXIDINE GLUCONATE
Strength: 0.5%
Dosage Form/Route: SOLUTION;TOPICAL
Application: A072292 | Product #001
Applicant: JOHNSON AND JOHNSON MEDICAL INC
Approved: Jan 28, 1992 | RLD: No | RS: No | Type: DISCN